FAERS Safety Report 8278876 (Version 3)
Quarter: 2012Q4

REPORT INFORMATION
  Report Type: 
  Country: US (occurrence: US)
  Receive Date: 20111208
  Receipt Date: 20120830
  Transmission Date: 20130627
  Serious: No
  Sender: FDA-Public Use
  Company Number: US-BIOGENIDEC-2011BI046343

PATIENT
  Age: 58 Year
  Sex: Female

DRUGS (9)
  1. AVONEX [Suspect]
     Indication: MULTIPLE SCLEROSIS
     Route: 030
     Dates: start: 20111205, end: 201112
  2. AVONEX [Suspect]
     Indication: MULTIPLE SCLEROSIS
     Route: 030
     Dates: start: 20120401
  3. AVONEX [Suspect]
     Indication: MULTIPLE SCLEROSIS
     Route: 030
     Dates: start: 20120430
  4. AVONEX [Suspect]
     Indication: MULTIPLE SCLEROSIS
     Route: 030
     Dates: start: 20120515, end: 20120521
  5. AVONEX [Suspect]
     Indication: MULTIPLE SCLEROSIS
     Route: 030
     Dates: start: 20120605, end: 20120620
  6. AVONEX [Suspect]
     Indication: MULTIPLE SCLEROSIS
     Route: 030
     Dates: start: 20120720, end: 20120803
  7. AVONEX [Suspect]
     Indication: MULTIPLE SCLEROSIS
     Route: 030
     Dates: start: 20120817
  8. OXCARBAZEPINE [Concomitant]
     Indication: PROPHYLAXIS
  9. ALEVE [Concomitant]
     Indication: PREMEDICATION

REACTIONS (16)
  - Multiple sclerosis [Not Recovered/Not Resolved]
  - Injection site haemorrhage [Recovered/Resolved]
  - Feeling of body temperature change [Recovered/Resolved]
  - Dry mouth [Not Recovered/Not Resolved]
  - Herpes zoster [Recovered/Resolved]
  - Gait disturbance [Recovered/Resolved]
  - Muscle contractions involuntary [Recovered/Resolved]
  - Muscle spasms [Not Recovered/Not Resolved]
  - Headache [Recovered/Resolved]
  - Injection site pain [Not Recovered/Not Resolved]
  - Injection site bruising [Not Recovered/Not Resolved]
  - Nausea [Recovered/Resolved]
  - Decreased appetite [Recovered/Resolved]
  - Influenza like illness [Not Recovered/Not Resolved]
  - Pruritus [Recovered/Resolved]
  - Pain [Recovered/Resolved]
